FAERS Safety Report 24279400 (Version 1)
Quarter: 2024Q3

REPORT INFORMATION
  Report Type: Report from Study
  Country: US (occurrence: US)
  Receive Date: 20240903
  Receipt Date: 20240903
  Transmission Date: 20241017
  Serious: Yes (Hospitalization)
  Sender: ABBVIE
  Company Number: US-ABBVIE-5902557

PATIENT
  Age: 26 Year
  Sex: Female

DRUGS (6)
  1. SKYRIZI [Suspect]
     Active Substance: RISANKIZUMAB-RZAA
     Indication: Crohn^s disease
     Dosage: STRENGTH: 360 MG/2.4 ML?WEEK 12
     Route: 058
     Dates: start: 20240605, end: 20240605
  2. SKYRIZI [Suspect]
     Active Substance: RISANKIZUMAB-RZAA
     Dosage: STRENGTH: 360 MG/2.4 ML
     Route: 058
     Dates: start: 202407
  3. METHOTREXATE [Concomitant]
     Active Substance: METHOTREXATE
     Indication: Product used for unknown indication
  4. SKYRIZI [Suspect]
     Active Substance: RISANKIZUMAB-RZAA
     Indication: Crohn^s disease
     Dosage: STRENGTH: 600MG  WEEK 0
     Route: 042
     Dates: start: 202403, end: 202403
  5. SKYRIZI [Suspect]
     Active Substance: RISANKIZUMAB-RZAA
     Indication: Crohn^s disease
     Dosage: STRENGTH: 600MG  WEEK 4
     Route: 042
     Dates: start: 202404, end: 202404
  6. SKYRIZI [Suspect]
     Active Substance: RISANKIZUMAB-RZAA
     Indication: Crohn^s disease
     Dosage: STRENGTH: 600MG  WEEK 8
     Route: 042
     Dates: start: 202405, end: 202405

REACTIONS (4)
  - Gastric ulcer [Unknown]
  - Hypophagia [Unknown]
  - Fatigue [Unknown]
  - Crohn^s disease [Unknown]

NARRATIVE: CASE EVENT DATE: 20240301
